FAERS Safety Report 24852094 (Version 1)
Quarter: 2025Q1

REPORT INFORMATION
  Report Type: Spontaneous
  Country: US (occurrence: US)
  Receive Date: 20250116
  Receipt Date: 20250116
  Transmission Date: 20250408
  Serious: No
  Sender: SK LIFE SCIENCE
  Company Number: US-SK LIFE SCIENCE, INC-SKPVG-2024-002162

PATIENT

DRUGS (1)
  1. XCOPRI [Suspect]
     Active Substance: CENOBAMATE
     Indication: Epilepsy
     Dosage: 12.5 MILLIGRAM, QD (AT NIGHT )
     Route: 048
     Dates: start: 2024

REACTIONS (3)
  - Seizure [Not Recovered/Not Resolved]
  - Brain fog [Unknown]
  - Feeling abnormal [Unknown]
